FAERS Safety Report 21445357 (Version 2)
Quarter: 2022Q4

REPORT INFORMATION
  Report Type: Other
  Country: HU (occurrence: HU)
  Receive Date: 20221012
  Receipt Date: 20221028
  Transmission Date: 20230112
  Serious: Yes (Hospitalization, Other)
  Sender: FDA-Public Use
  Company Number: None

PATIENT
  Age: 53 Year
  Sex: Male
  Weight: 118 kg

DRUGS (36)
  1. ROSUVASTATIN [Suspect]
     Active Substance: ROSUVASTATIN
     Indication: Product used for unknown indication
     Dosage: 10 MILLIGRAM, QD (START DATE: 2014)
     Route: 065
  2. AMLODIPINE [Suspect]
     Active Substance: AMLODIPINE BESYLATE
     Indication: Cardiac failure
     Dosage: 5 MG, QD;(TABLET (UNCOATED))
     Route: 048
  3. METFORMIN [Suspect]
     Active Substance: METFORMIN HYDROCHLORIDE
     Indication: Cardiac failure
     Dosage: 1000 MG, BID
     Route: 065
  4. NEBIVOLOL [Suspect]
     Active Substance: NEBIVOLOL
     Indication: Product used for unknown indication
     Dosage: 5 MG (START DATE: 25-AUG-2014 STOP DATE: 2014)
     Route: 065
  5. NEBIVOLOL [Suspect]
     Active Substance: NEBIVOLOL
     Dosage: 5 MG, (5-2.5 MG) (START DATE: 2014)
     Route: 065
  6. NEBIVOLOL [Suspect]
     Active Substance: NEBIVOLOL
     Dosage: 5 MILLIGRAM, BID (STOP DATE: NOV-2018)
     Route: 065
  7. SACUBITRIL\VALSARTAN [Suspect]
     Active Substance: SACUBITRIL\VALSARTAN
     Indication: Product used for unknown indication
     Dosage: 200 MG, QD (STARTE DATE JUN 2018)
     Route: 065
  8. SACUBITRIL\VALSARTAN [Suspect]
     Active Substance: SACUBITRIL\VALSARTAN
     Dosage: 200 MG, BID
     Route: 065
  9. SACUBITRIL\VALSARTAN [Suspect]
     Active Substance: SACUBITRIL\VALSARTAN
     Dosage: 2 DOSAGE FORM, QD (97/103 MG)
     Route: 065
  10. PANTOPRAZOLE [Suspect]
     Active Substance: PANTOPRAZOLE
     Indication: Product used for unknown indication
     Dosage: 40 MILLIGRAM, QD
     Route: 065
  11. BISOPROLOL [Suspect]
     Active Substance: BISOPROLOL
     Indication: Product used for unknown indication
     Dosage: 5 MILLIGRAM, BID (STARTE DATE: NOV 2018)
     Route: 065
  12. FUROSEMIDE [Concomitant]
     Active Substance: FUROSEMIDE
     Indication: Product used for unknown indication
     Dosage: 40 MG, QD; (UNCOATED) (TABLET)
     Route: 048
  13. FUROSEMIDE [Concomitant]
     Active Substance: FUROSEMIDE
     Dosage: 40 MILLIGRAM (START DATE: 25-AUG-2014)
     Route: 065
  14. ASPIRIN [Concomitant]
     Active Substance: ASPIRIN
     Indication: Product used for unknown indication
     Dosage: 100 MILLIGRAM
     Route: 065
  15. EMPAGLIFLOZIN\METFORMIN HYDROCHLORIDE [Concomitant]
     Active Substance: EMPAGLIFLOZIN\METFORMIN HYDROCHLORIDE
     Indication: Product used for unknown indication
     Dosage: 2 DOSAGE FORM, QD
     Route: 065
  16. WARFARIN [Concomitant]
     Active Substance: WARFARIN
     Indication: Product used for unknown indication
     Dosage: UNK (START DATE 10 OCT 2016)
     Route: 065
  17. POTASSIUM CHLORIDE [Concomitant]
     Active Substance: POTASSIUM CHLORIDE
     Indication: Product used for unknown indication
     Dosage: 1 GRAM, QD
     Route: 065
  18. INDAPAMIDE\PERINDOPRIL [Concomitant]
     Active Substance: INDAPAMIDE\PERINDOPRIL
     Indication: Product used for unknown indication
     Dosage: 1 DOSAGE FORM, (4/1.25 MG)
     Route: 065
  19. INDAPAMIDE\PERINDOPRIL [Concomitant]
     Active Substance: INDAPAMIDE\PERINDOPRIL
     Dosage: 1 DOSAGE FORM, (8/2.5 MG, IN THE MORNING) (STARTE DATE: 13-JAN-2016)
     Route: 065
  20. INDAPAMIDE\PERINDOPRIL [Concomitant]
     Active Substance: INDAPAMIDE\PERINDOPRIL
     Dosage: 4 MILLIGRAM, BID (START DATE: 2014)
     Route: 065
  21. DIGOXIN [Concomitant]
     Active Substance: DIGOXIN
     Indication: Product used for unknown indication
     Dosage: UNK (START DATE: 2021 STOP DATE: 2021)
     Route: 065
  22. INSULIN GLARGINE [Concomitant]
     Active Substance: INSULIN GLARGINE
     Indication: Product used for unknown indication
     Dosage: UNK (42 UNIT)
     Route: 065
  23. INSULIN GLARGINE [Concomitant]
     Active Substance: INSULIN GLARGINE
     Dosage: 30 INTERNATIONAL UNIT, QD
     Route: 058
  24. INSULIN GLULISINE [Concomitant]
     Active Substance: INSULIN GLULISINE
     Indication: Product used for unknown indication
     Dosage: 20 INTERNATIONAL UNIT, TID
     Route: 058
  25. SPIRONOLACTONE [Concomitant]
     Active Substance: SPIRONOLACTONE
     Indication: Product used for unknown indication
     Dosage: 25 MILLIGRAM, QD
     Route: 065
  26. SPIRONOLACTONE [Concomitant]
     Active Substance: SPIRONOLACTONE
     Dosage: 25 MG (START DATE: 25-AUG-2014)
     Route: 065
  27. SPIRONOLACTONE [Concomitant]
     Active Substance: SPIRONOLACTONE
     Dosage: 50 MG
     Route: 065
  28. PERINDOPRIL [Concomitant]
     Active Substance: PERINDOPRIL
     Indication: Product used for unknown indication
     Dosage: 4 MILLIGRAM, BID (START DATE: 25-AUG-2014)
     Route: 065
  29. DIETARY SUPPLEMENT\RESVERATROL [Concomitant]
     Active Substance: DIETARY SUPPLEMENT\RESVERATROL
     Indication: Product used for unknown indication
     Dosage: UNK (START DATE: 03-MAR-2017)
     Route: 065
  30. ALLOPURINOL [Concomitant]
     Active Substance: ALLOPURINOL
     Indication: Product used for unknown indication
     Dosage: 300 MILLIGRAM (START DATE: 25-AUG-2014)
     Route: 065
  31. ALLOPURINOL [Concomitant]
     Active Substance: ALLOPURINOL
     Dosage: UNK
     Route: 065
  32. DAPAGLIFLOZIN [Concomitant]
     Active Substance: DAPAGLIFLOZIN
     Indication: Product used for unknown indication
     Dosage: 10 MG
     Route: 065
  33. UNSPECIFIED INGREDIENT [Concomitant]
     Active Substance: UNSPECIFIED INGREDIENT
     Indication: Anticoagulant therapy
     Dosage: 1 MILLILITER, QD (START DATE: 10-OCT-2016)INJECTION
     Route: 058
  34. INSULIN NOS [Concomitant]
     Active Substance: INSULIN NOS
     Indication: Product used for unknown indication
     Dosage: UNK (START DATE: 2017)
     Route: 065
  35. RANITIDINE [Concomitant]
     Active Substance: RANITIDINE
     Indication: Product used for unknown indication
     Dosage: 150 MILLIGRAM, BID (START DATE: 25-AUG-2014)
     Route: 065
  36. ACTRAPID [Concomitant]
     Active Substance: INSULIN HUMAN
     Indication: Product used for unknown indication
     Dosage: UNK, (20/20/20 UNIT)
     Route: 065

REACTIONS (50)
  - Ventricular fibrillation [Unknown]
  - Arrhythmia [Recovered/Resolved]
  - Hydrocholecystis [Unknown]
  - Atrial flutter [Recovered/Resolved]
  - Atrial flutter [Recovered/Resolved]
  - Chest pain [Unknown]
  - Heart rate increased [Unknown]
  - Cardiac failure congestive [Unknown]
  - Congestive cardiomyopathy [Unknown]
  - Anaemia [Unknown]
  - Ventricular tachycardia [Recovered/Resolved]
  - Sinus arrest [Unknown]
  - Atrial fibrillation [Unknown]
  - Ventricular tachycardia [Recovered/Resolved]
  - Atrial fibrillation [Recovered/Resolved]
  - Dyspnoea [Not Recovered/Not Resolved]
  - Pancreatitis [Unknown]
  - Blood thyroid stimulating hormone increased [Unknown]
  - Hyperlipidaemia [Unknown]
  - Red cell distribution width increased [Unknown]
  - Heart rate irregular [Unknown]
  - Transferrin saturation decreased [Unknown]
  - Weight increased [Recovered/Resolved]
  - Electrocardiogram T wave amplitude decreased [Unknown]
  - Glycosylated haemoglobin increased [Unknown]
  - Cholelithiasis [Unknown]
  - Condition aggravated [Unknown]
  - Haemoglobin decreased [Unknown]
  - Atrial enlargement [Unknown]
  - International normalised ratio fluctuation [Unknown]
  - Extrasystoles [Unknown]
  - Mean cell volume increased [Unknown]
  - Ejection fraction decreased [Recovered/Resolved]
  - Bundle branch block left [Unknown]
  - Troponin T increased [Unknown]
  - Electrocardiogram abnormal [Unknown]
  - Exercise tolerance decreased [Unknown]
  - Sciatica [Unknown]
  - Electrocardiogram ST segment abnormal [Unknown]
  - Supraventricular extrasystoles [Unknown]
  - Ventricular extrasystoles [Unknown]
  - Mean cell haemoglobin increased [Unknown]
  - Inflammatory marker increased [Unknown]
  - Glomerular filtration rate increased [Unknown]
  - Arrhythmia supraventricular [Unknown]
  - Vitamin B12 deficiency [Unknown]
  - Drug effect less than expected [Unknown]
  - Fatigue [Unknown]
  - Asthenia [Unknown]
  - Platelet count decreased [Unknown]

NARRATIVE: CASE EVENT DATE: 20140101
